FAERS Safety Report 8420790-0 (Version None)
Quarter: 2012Q2

REPORT INFORMATION
  Report Type: 
  Country: None (occurrence: None)
  Receive Date: 20120608
  Receipt Date: 20120529
  Transmission Date: 20120825
  Serious: No
  Sender: FDA-Public Use
  Company Number: US-PFIZER INC-2012129404

PATIENT
  Sex: Female
  Weight: 70.295 kg

DRUGS (8)
  1. WARFARIN SODIUM [Interacting]
     Indication: ATRIAL FIBRILLATION
     Dosage: 5 MG ON MONDAY AND THURSDAY AND 2.5 MG FOR REST DAYS OF WEEK
     Dates: start: 20110301
  2. WARFARIN SODIUM [Interacting]
     Dosage: UNK
  3. DRONEDARONE HCL [Suspect]
     Dosage: UNK
  4. HYDROCHLOROTHIAZIDE [Concomitant]
     Indication: BLOOD PRESSURE ABNORMAL
     Dosage: 12.5 MG, DAILY
  5. ATACAND [Concomitant]
     Indication: BLOOD PRESSURE ABNORMAL
     Dosage: 16 MG, DAILY
  6. ZETIA [Suspect]
     Dosage: UNK
  7. TOVIAZ [Interacting]
     Indication: URINARY INCONTINENCE
     Dosage: 4 MG, DAILY
     Route: 048
     Dates: start: 20110101
  8. TOVIAZ [Interacting]
     Dosage: 2 MG, 1X/DAY

REACTIONS (6)
  - DRUG INTERACTION [None]
  - HYPERKERATOSIS [None]
  - WRONG TECHNIQUE IN DRUG USAGE PROCESS [None]
  - DRY MOUTH [None]
  - RASH [None]
  - PRURITUS [None]
